FAERS Safety Report 6344304-4 (Version None)
Quarter: 2009Q3

REPORT INFORMATION
  Report Type: 
  Country: None (occurrence: None)
  Receive Date: 20090908
  Receipt Date: 20090901
  Transmission Date: 20100115
  Serious: Yes (Hospitalization)
  Sender: FDA-Public Use
  Company Number: JP-ROCHE-651204

PATIENT
  Sex: Male
  Weight: 50.4 kg

DRUGS (11)
  1. CAPECITABINE [Suspect]
     Indication: GASTRIC CANCER
     Dosage: FREQUENCY: BID.TWICE DAILY FOR 14 DAYS EVERY 3 WEEKS, DOSE: 2000 MG/M2, LAST DOSE: 18 AUG 09
     Route: 048
     Dates: start: 20080924, end: 20090818
  2. BLINDED BEVACIZUMAB [Suspect]
     Indication: GASTRIC CANCER
     Dosage: FREQUENCY: EVERY 3 WEEKS, ON DAY 1 OF CYCLE 1, FORM: INFUSION, LAST DOSE PRIOR TO SAE: 13 AUG 09
     Route: 042
     Dates: start: 20080924
  3. CISPLATIN [Suspect]
     Indication: GASTRIC CANCER
     Dosage: DOSE PRIOR TO SAE:17 OCTOBER 2008,FORM: INFUSION. FREQUENCY:DAY1 EVERY THREE WEEKS, DOSE:80 MG/M2
     Route: 042
     Dates: start: 20080924, end: 20081017
  4. SODIUM GUALENATE [Concomitant]
     Dosage: DRUG: SODIUM GUALENATE HYDRATE
  5. FUROSEMIDE [Concomitant]
  6. POLAPREZINC [Concomitant]
     Dates: start: 20081126
  7. URSODIOL [Concomitant]
     Dates: start: 20090106
  8. BENZBROMARONE [Concomitant]
     Dates: start: 20090113
  9. PYRIDOXAL PHOSPHATE [Concomitant]
     Dosage: DRUG; PYRIDOXAL PHOSPHATE HYDRATE
     Dates: start: 20090728
  10. HEPARIN [Concomitant]
     Dates: start: 20090728
  11. BETAMETHASONE DIPROPIONATE [Concomitant]
     Dates: start: 20090317

REACTIONS (2)
  - DEHYDRATION [None]
  - PNEUMONIA [None]
